FAERS Safety Report 23750972 (Version 1)
Quarter: 2024Q2

REPORT INFORMATION
  Report Type: Spontaneous
  Country: US (occurrence: None)
  Receive Date: 20240417
  Receipt Date: 20240417
  Transmission Date: 20240716
  Serious: No
  Sender: FDA-Public Use
  Company Number: 2024A090695

PATIENT

DRUGS (1)
  1. BYDUREON BCISE [Suspect]
     Active Substance: EXENATIDE

REACTIONS (5)
  - Dry mouth [Unknown]
  - Cardiac disorder [Unknown]
  - Weight decreased [Unknown]
  - Product storage error [Unknown]
  - Product dose omission issue [Unknown]
